FAERS Safety Report 6354181-3 (Version None)
Quarter: 2009Q3

REPORT INFORMATION
  Report Type: 
  Country: None (occurrence: None)
  Receive Date: 20090914
  Receipt Date: 20070712
  Transmission Date: 20100115
  Serious: Yes (Hospitalization)
  Sender: FDA-Public Use
  Company Number: US-ASTRAZENECA-2009SE11728

PATIENT
  Age: 13038 Day
  Sex: Male
  Weight: 123.4 kg

DRUGS (1)
  1. SEROQUEL [Suspect]
     Dosage: 100 MG PO Q AM AND 300 MG PO Q HS
     Route: 048
     Dates: start: 20000501

REACTIONS (12)
  - AGITATION [None]
  - ANTISOCIAL PERSONALITY DISORDER [None]
  - BLOOD GLUCOSE INCREASED [None]
  - FACTITIOUS DISORDER [None]
  - HYPERCHOLESTEROLAEMIA [None]
  - HYPERTENSION [None]
  - HYPERTRIGLYCERIDAEMIA [None]
  - ILL-DEFINED DISORDER [None]
  - INSULIN RESISTANCE [None]
  - OBESITY [None]
  - PSYCHOTIC DISORDER [None]
  - SCHIZOAFFECTIVE DISORDER BIPOLAR TYPE [None]
